FAERS Safety Report 12106138 (Version 2)
Quarter: 2018Q1

REPORT INFORMATION
  Report Type: Spontaneous
  Country: GB (occurrence: GB)
  Receive Date: 20160223
  Receipt Date: 20180112
  Transmission Date: 20180508
  Serious: Yes (Other)
  Sender: FDA-Public Use
  Company Number: GB-ELI_LILLY_AND_COMPANY-GB201602003573

PATIENT
  Age: 40 Year
  Sex: Male
  Weight: 92 kg

DRUGS (5)
  1. OLANZAPINE PAMOATE 300MG [Suspect]
     Active Substance: OLANZAPINE PAMOATE
     Indication: SCHIZOAFFECTIVE DISORDER
     Dosage: 300 MG, UNK
     Route: 030
     Dates: end: 20160128
  2. DEPAKOTE [Concomitant]
     Active Substance: DIVALPROEX SODIUM
     Dosage: UNK
  3. DIAZEPAM. [Concomitant]
     Active Substance: DIAZEPAM
     Dosage: UNK
  4. OMEPRAZOLE. [Concomitant]
     Active Substance: OMEPRAZOLE
     Dosage: UNK
  5. CORSODYL [Concomitant]
     Active Substance: CHLORHEXIDINE GLUCONATE
     Dosage: UNK

REACTIONS (9)
  - Injection site erythema [Recovering/Resolving]
  - Injection site infection [Recovering/Resolving]
  - Injection site swelling [Recovering/Resolving]
  - Injection site abscess [Unknown]
  - Pyrexia [Recovering/Resolving]
  - Injection site inflammation [Recovering/Resolving]
  - Heart rate increased [Recovering/Resolving]
  - Injection site pain [Recovering/Resolving]
  - Musculoskeletal stiffness [Recovering/Resolving]

NARRATIVE: CASE EVENT DATE: 20151101
